FAERS Safety Report 5016804-0 (Version None)
Quarter: 2006Q2

REPORT INFORMATION
  Report Type: 
  Country: None (occurrence: None)
  Receive Date: 20060602
  Receipt Date: 20051026
  Transmission Date: 20061013
  Serious: Yes (Hospitalization)
  Sender: FDA-Public Use
  Company Number: US-GLAXOSMITHKLINE-A0579758A

PATIENT
  Sex: Male

DRUGS (9)
  1. AUGMENTIN '125' [Suspect]
     Indication: INFECTION PROPHYLAXIS
     Route: 048
  2. FOSINOPRIL SODIUM [Concomitant]
  3. OMEPRAZOLE [Concomitant]
  4. ACETAMINOPHEN [Concomitant]
  5. PROPOXYPHENE HYDROCHLORIDE [Concomitant]
  6. SILDENAFIL CITRATE [Concomitant]
  7. INSULIN [Concomitant]
  8. FEXOFENADINE [Concomitant]
  9. PREDNISONE [Concomitant]

REACTIONS (3)
  - HEPATIC ENZYME INCREASED [None]
  - NAUSEA [None]
  - VOMITING [None]
